FAERS Safety Report 23532863 (Version 3)
Quarter: 2024Q1

REPORT INFORMATION
  Report Type: Report from Study
  Country: IT (occurrence: IT)
  Receive Date: 20240216
  Receipt Date: 20240305
  Transmission Date: 20240410
  Serious: Yes (Other)
  Sender: FDA-Public Use
  Company Number: IT-VERTEX PHARMACEUTICALS-2024-002307

PATIENT
  Age: 5 Year
  Sex: Female
  Weight: 15 kg

DRUGS (15)
  1. ELEXACAFTOR\IVACAFTOR\TEZACAFTOR [Suspect]
     Active Substance: ELEXACAFTOR\IVACAFTOR\TEZACAFTOR
     Indication: Cystic fibrosis
     Dosage: 80MG ELEXACAFTOR/40MG TEZACAFTOR/60MG IVACAFTOR AND 59.5 IVA, UNK FREQ
     Route: 048
     Dates: start: 20230517, end: 20230905
  2. ELEXACAFTOR\IVACAFTOR\TEZACAFTOR [Suspect]
     Active Substance: ELEXACAFTOR\IVACAFTOR\TEZACAFTOR
     Dosage: (100MG ELEXACAFTOR/ 50MG TEZACAFTOR/ 75MG IVACAFTOR) UNK FREQ
     Route: 048
     Dates: start: 20230907
  3. ELEXACAFTOR\IVACAFTOR\TEZACAFTOR [Suspect]
     Active Substance: ELEXACAFTOR\IVACAFTOR\TEZACAFTOR
     Dosage: ALTERNATIVE DAYS (1 DAY ELEXA100MG/ TEZ50MG/ IVA 75MG AND ONE DAY IVA 75 MG)
     Route: 048
  4. ELEXACAFTOR\IVACAFTOR\TEZACAFTOR [Suspect]
     Active Substance: ELEXACAFTOR\IVACAFTOR\TEZACAFTOR
     Dosage: 100 MG ELEXA/50MG TEZA/75 MG IVA EVERY OTHER DAY WITH 75MG IVA
     Route: 048
     Dates: start: 20231110
  5. IVACAFTOR [Suspect]
     Active Substance: IVACAFTOR
     Indication: Cystic fibrosis
     Dosage: 59.5 MG, QD
     Route: 048
     Dates: start: 20230517, end: 20230905
  6. IVACAFTOR [Suspect]
     Active Substance: IVACAFTOR
     Dosage: 75 MG
     Route: 048
     Dates: start: 20230907
  7. IVACAFTOR [Suspect]
     Active Substance: IVACAFTOR
     Dosage: ALTERNATIVE DAYS (1 DAY ELEXA100MG/ TEZ50MG/ IVA 75MG AND ONE DAY IVA 75 MG)
     Route: 048
  8. IVACAFTOR [Suspect]
     Active Substance: IVACAFTOR
     Dosage: 100 MG ELEXA/50MG TEZA/75 MG IVA EVERY OTHER DAY WITH 75MG IVA
     Route: 048
     Dates: start: 20231110
  9. UNSPECIFIED INGREDIENT [Concomitant]
     Active Substance: UNSPECIFIED INGREDIENT
     Indication: Pancreatic failure
     Dosage: CAPSULES 10,000 U, 8 PER DAY
     Dates: start: 20220729
  10. LANSOPRAZOLE [Concomitant]
     Active Substance: LANSOPRAZOLE
     Indication: Pancreatic failure
     Dosage: 15 MG, QD
     Dates: start: 20190926
  11. AZITHROMYCIN [Concomitant]
     Active Substance: AZITHROMYCIN
     Indication: Lung disorder
     Dosage: 250 MG DAILY
     Dates: start: 20211004
  12. IRON [Concomitant]
     Active Substance: IRON
     Indication: Iron deficiency anaemia
     Dosage: 4 DROPS DAILY
     Dates: start: 20221205
  13. ALBUTEROL [Concomitant]
     Active Substance: ALBUTEROL
     Indication: Lung disorder
     Dosage: SPRAY 1 PUFF PER DAY
     Dates: start: 20220520
  14. SODIUM CHLORIDE [Concomitant]
     Active Substance: SODIUM CHLORIDE
     Indication: Lung disorder
     Dosage: 1 VIAL DAILY IN AEROSOL
     Dates: start: 20230714
  15. DEOXYRIBONUCLEASE HUMAN [Concomitant]
     Indication: Lung disorder
     Dosage: 1 VIAL DAILY IN AEROSOL
     Dates: start: 20201002

REACTIONS (5)
  - Disturbance in attention [Recovered/Resolved]
  - Agitation [Recovered/Resolved]
  - Loss of consciousness [Recovered/Resolved]
  - Psychomotor hyperactivity [Recovered/Resolved]
  - Abnormal behaviour [Recovered/Resolved]

NARRATIVE: CASE EVENT DATE: 20230924
